APPROVED DRUG PRODUCT: ALLOPURINOL
Active Ingredient: ALLOPURINOL
Strength: 100MG
Dosage Form/Route: TABLET;ORAL
Application: A090637 | Product #001
Applicant: IPCA LABORATORIES LTD
Approved: Mar 16, 2011 | RLD: No | RS: No | Type: DISCN